FAERS Safety Report 7480840-5 (Version None)
Quarter: 2011Q2

REPORT INFORMATION
  Report Type: 
  Country: None (occurrence: None)
  Receive Date: 20110516
  Receipt Date: 20110503
  Transmission Date: 20111010
  Serious: Yes (Hospitalization)
  Sender: FDA-Public Use
  Company Number: DE-RANBAXY-2011RR-44294

PATIENT
  Age: 89 Year
  Sex: Female
  Weight: 50 kg

DRUGS (11)
  1. MICTONORM [Suspect]
     Indication: INCONTINENCE
     Dosage: 15 MG, BID
     Route: 048
  2. OXYCODONE HCL [Suspect]
     Indication: PAIN
     Dosage: 20 MG, BID
     Route: 048
     Dates: start: 19990101, end: 20110120
  3. METAMIZOL [Concomitant]
     Indication: PAIN
     Dosage: 750 MG, TID
     Route: 048
  4. ASPIRIN [Concomitant]
     Indication: ISCHAEMIC HEART DISEASE PROPHYLAXIS
     Dosage: 100 MG, QD
     Route: 048
  5. MIRTAZAPINE [Concomitant]
     Indication: DEPRESSION
     Dosage: 7.5 MG, QD
     Route: 048
  6. MOXONIDINE [Suspect]
     Indication: HYPERTENSION
     Dosage: 0.3 MG, QD
     Route: 048
  7. DEKRISTOL [Concomitant]
     Indication: OSTEOPOROSIS
     Dosage: 20000 IU, BID
     Route: 048
  8. QUINAPRIL [Suspect]
     Indication: HYPERTENSION
     Dosage: 10 MG, BID
     Route: 048
  9. AMLODIPINE BESYLATE [Concomitant]
     Indication: HYPERTENSION
     Dosage: 10 MG, QD
     Route: 048
  10. BISOPROLOL FUMARATE [Suspect]
     Indication: HYPERTENSION
     Dosage: 2.5 MG, BID
     Route: 048
  11. MACROGOL [Concomitant]
     Indication: CONSTIPATION
     Dosage: 13.125 G, QD
     Route: 048

REACTIONS (1)
  - SUBILEUS [None]
